FAERS Safety Report 24287222 (Version 1)
Quarter: 2024Q3

REPORT INFORMATION
  Report Type: Other
  Country: CA (occurrence: CA)
  Receive Date: 20240905
  Receipt Date: 20240905
  Transmission Date: 20241016
  Serious: Yes (Other)
  Sender: DENTSPLY
  Company Number: CA-DENTSPLY-2024SCDP000248

PATIENT
  Age: 55 Year
  Sex: Female
  Weight: 80 kg

DRUGS (1)
  1. LIDOCAINE [Suspect]
     Active Substance: LIDOCAINE
     Indication: Pain management
     Dosage: 400.0 MICROGRAM ONCE LIDOCAINE HCL INJECTION (SOLUTION BLOCK/INFILTRATION)
     Route: 050

REACTIONS (4)
  - Ear discomfort [Recovered/Resolved]
  - Paraesthesia oral [Recovered/Resolved]
  - Dizziness [Recovered/Resolved]
  - Hypoaesthesia [Recovered/Resolved]
